FAERS Safety Report 12750242 (Version 1)
Quarter: 2016Q3

REPORT INFORMATION
  Report Type: Spontaneous
  Country: US (occurrence: US)
  Receive Date: 20160916
  Receipt Date: 20160916
  Transmission Date: 20161109
  Serious: Yes (Disabling)
  Sender: FDA-Public Use
  Company Number: None

PATIENT
  Age: 32 Year
  Sex: Female
  Weight: 90 kg

DRUGS (7)
  1. VISTERAL [Concomitant]
  2. CLARTIN [Concomitant]
  3. VALIUM [Concomitant]
     Active Substance: DIAZEPAM
  4. SYNTHROID [Concomitant]
     Active Substance: LEVOTHYROXINE SODIUM
  5. LITHIUM. [Concomitant]
     Active Substance: LITHIUM
  6. IBUPROFEN. [Concomitant]
     Active Substance: IBUPROFEN
  7. SAPHRIS [Suspect]
     Active Substance: ASENAPINE MALEATE
     Indication: BIPOLAR DISORDER
     Route: 060
     Dates: start: 20150501, end: 20150527

REACTIONS (3)
  - Mobility decreased [None]
  - Speech disorder [None]
  - Somnolence [None]

NARRATIVE: CASE EVENT DATE: 20160501
